FAERS Safety Report 6083548-6 (Version None)
Quarter: 2009Q1

REPORT INFORMATION
  Report Type: 
  Country: None (occurrence: None)
  Receive Date: 20090217
  Receipt Date: 20090206
  Transmission Date: 20090719
  Serious: Yes (Hospitalization)
  Sender: FDA-Public Use
  Company Number: US025341

PATIENT
  Age: 62 Year
  Sex: Female
  Weight: 150.1406 kg

DRUGS (8)
  1. AMRIX [Suspect]
     Indication: NERVE COMPRESSION
     Dosage: 15 MG QHS ORAL
     Route: 048
     Dates: start: 20080925, end: 20081002
  2. AMRIX [Suspect]
     Indication: NERVE COMPRESSION
     Dosage: 15 MG QHS ORAL
     Route: 048
     Dates: start: 20081016, end: 20081026
  3. AMRIX [Suspect]
     Indication: NERVE COMPRESSION
     Dosage: 15 MG QHS ORAL
     Route: 048
     Dates: start: 20090116, end: 20090123
  4. DICLOFENAC SODIUM [Concomitant]
  5. METFORMIN [Concomitant]
  6. ACTOS [Concomitant]
  7. AVAPRO [Concomitant]
  8. ASPIRIN [Concomitant]

REACTIONS (7)
  - CONDITION AGGRAVATED [None]
  - MUSCLE SPASMS [None]
  - MUSCULOSKELETAL STIFFNESS [None]
  - NERVE COMPRESSION [None]
  - SCIATICA [None]
  - SPINAL CORD DISORDER [None]
  - TREATMENT FAILURE [None]
